FAERS Safety Report 12779716 (Version 1)
Quarter: 2016Q3

REPORT INFORMATION
  Report Type: Spontaneous
  Country: US (occurrence: US)
  Receive Date: 20160924
  Receipt Date: 20160924
  Transmission Date: 20161109
  Serious: Yes (Disabling)
  Sender: FDA-Public Use
  Company Number: None

PATIENT
  Age: 53 Year
  Sex: Female
  Weight: 65.25 kg

DRUGS (1)
  1. HYOSCYAMINE SULPHATE 0.125 MG [Suspect]
     Active Substance: HYOSCYAMINE SULFATE
     Indication: IRRITABLE BOWEL SYNDROME
     Route: 060
     Dates: start: 20160901, end: 20160924

REACTIONS (3)
  - Dizziness [None]
  - Micturition disorder [None]
  - Product use issue [None]

NARRATIVE: CASE EVENT DATE: 20160910
